FAERS Safety Report 5103598-3 (Version None)
Quarter: 2006Q3

REPORT INFORMATION
  Report Type: 
  Country: None (occurrence: None)
  Receive Date: 20060908
  Receipt Date: 20060908
  Transmission Date: 20061208
  Serious: No
  Sender: FDA-Public Use
  Company Number: None

PATIENT
  Sex: Male
  Weight: 149.687 kg

DRUGS (5)
  1. TOPIRAMATE [Suspect]
     Indication: MOOD SWINGS
     Dosage: 100 MG ONCE NIGHTLY PO
     Route: 048
     Dates: start: 20060606, end: 20060618
  2. TOPIRAMATE [Suspect]
     Indication: PAIN
     Dosage: 100 MG ONCE NIGHTLY PO
     Route: 048
     Dates: start: 20060606, end: 20060618
  3. HCTZ 25/LISINOPRIL 20 MG [Concomitant]
  4. METHADONE HCL [Concomitant]
  5. VARDENAFIL HCL [Concomitant]

REACTIONS (2)
  - CONFUSIONAL STATE [None]
  - NIGHTMARE [None]
